FAERS Safety Report 8833145 (Version 2)
Quarter: 2012Q4

REPORT INFORMATION
  Report Type: 
  Country: AU (occurrence: AU)
  Receive Date: 20121010
  Receipt Date: 20121204
  Transmission Date: 20130627
  Serious: Yes (Hospitalization)
  Sender: FDA-Public Use
  Company Number: AU-B.I. PHARMACEUTICALS,INC./RIDGEFIELD-2012-AU-01694AU

PATIENT
  Sex: Male

DRUGS (3)
  1. PRADAXA [Suspect]
     Indication: ATRIAL FIBRILLATION
     Dates: start: 2011
  2. PERINDOPRIL [Concomitant]
     Route: 048
  3. CRESTOR [Concomitant]
     Route: 048

REACTIONS (2)
  - Renal failure acute [Unknown]
  - Obstruction [Unknown]
